FAERS Safety Report 10307414 (Version 1)
Quarter: 2014Q3

REPORT INFORMATION
  Report Type: Spontaneous
  Country: US (occurrence: None)
  Receive Date: 20140714
  Receipt Date: 20140714
  Transmission Date: 20150326
  Serious: Yes (Disabling)
  Sender: FDA-Public Use
  Company Number: None

PATIENT
  Age: 53 Year
  Sex: Female
  Weight: 95.26 kg

DRUGS (1)
  1. LEVAQUIN [Suspect]
     Active Substance: LEVOFLOXACIN
     Indication: SINUSITIS
     Dosage: 1 DOSE ONCE DAILY TAKEN BY MOUTH
     Route: 048
     Dates: start: 20140224, end: 20140228

REACTIONS (11)
  - Inflammation [None]
  - Pain in extremity [None]
  - Fatigue [None]
  - Red blood cell sedimentation rate increased [None]
  - Blood glucose increased [None]
  - Pain [None]
  - Gait disturbance [None]
  - Sinusitis [None]
  - Chest pain [None]
  - Immune system disorder [None]
  - Musculoskeletal chest pain [None]

NARRATIVE: CASE EVENT DATE: 20140228
